FAERS Safety Report 7207302-4 (Version None)
Quarter: 2011Q1

REPORT INFORMATION
  Report Type: 
  Country: None (occurrence: None)
  Receive Date: 20110103
  Receipt Date: 20101229
  Transmission Date: 20110831
  Serious: Yes (Hospitalization)
  Sender: FDA-Public Use
  Company Number: GB-ROCHE-750911

PATIENT
  Sex: Female
  Weight: 9.2 kg

DRUGS (5)
  1. OMEPRAZOLE [Suspect]
     Route: 065
  2. OSELTAMIVIR [Suspect]
     Indication: INFLUENZA
     Dosage: FORM: LIQUID, DATE OF LAST DOSE PRIOR TO SAE: 22 DECEMBER 2010
     Route: 048
     Dates: start: 20101217
  3. COTRIM [Suspect]
     Route: 042
  4. HYOSCINE HYDROCHLORIDE [Suspect]
     Dosage: DRUG REPORTED AS: HYOSCINE PATCH
     Route: 065
  5. DOMPERIDONE [Suspect]
     Route: 065

REACTIONS (2)
  - PNEUMONIA ASPIRATION [None]
  - RESPIRATORY DISTRESS [None]
